FAERS Safety Report 9858213 (Version 1)
Quarter: 2014Q1

REPORT INFORMATION
  Report Type: Spontaneous
  Country: IT (occurrence: IT)
  Receive Date: 20140131
  Receipt Date: 20140131
  Transmission Date: 20141002
  Serious: Yes (Other)
  Sender: FDA-Public Use
  Company Number: IT-JNJFOC-20140112505

PATIENT
  Age: 34 Year
  Sex: Male

DRUGS (4)
  1. TOPIRAMATE [Suspect]
     Indication: EPILEPSY
     Route: 048
     Dates: start: 201307
  2. TOPIRAMATE [Suspect]
     Indication: EPILEPSY
     Route: 048
     Dates: start: 201306
  3. CARBAMAZEPINE [Suspect]
     Indication: EPILEPSY
     Route: 065
  4. LEVETIRACETAM [Suspect]
     Indication: EPILEPSY
     Route: 065

REACTIONS (1)
  - Psychotic disorder [Recovered/Resolved]
